FAERS Safety Report 11246785 (Version 1)
Quarter: 2015Q3

REPORT INFORMATION
  Report Type: Spontaneous
  Country: US (occurrence: None)
  Receive Date: 20150706
  Receipt Date: 20150706
  Transmission Date: 20151125
  Serious: No
  Sender: FDA-Public Use
  Company Number: None

PATIENT
  Age: 74 Year
  Sex: Male
  Weight: 78.02 kg

DRUGS (22)
  1. VITAMIN E [Concomitant]
     Active Substance: .ALPHA.-TOCOPHEROL
  2. VITAMIN C [Concomitant]
     Active Substance: ASCORBIC ACID
  3. PACEMAKER [Concomitant]
  4. HERBS (DR. CHRISTOPHER^S KIDNEY FORMULA) [Concomitant]
  5. ACIDOPHILUS [Concomitant]
     Active Substance: LACTOBACILLUS ACIDOPHILUS
  6. MIDODRINE [Concomitant]
     Active Substance: MIDODRINE
  7. MAGNESIUM [Concomitant]
     Active Substance: MAGNESIUM
  8. TURMERIC [Concomitant]
     Active Substance: TURMERIC
  9. VITAMIN D [Concomitant]
     Active Substance: CHOLECALCIFEROL
  10. MELATONIN [Concomitant]
     Active Substance: MELATONIN
  11. SOTOLOL [Concomitant]
     Active Substance: SOTALOL
  12. PRAVASTATIN [Concomitant]
     Active Substance: PRAVASTATIN\PRAVASTATIN SODIUM
  13. INSULIN (NOVALOG AND LANTUS) [Concomitant]
  14. FOSAMAX [Suspect]
     Active Substance: ALENDRONATE SODIUM
     Indication: OSTEOPOROSIS
     Dosage: 1 PILL/WEEKLY WEEKLY TAKEN BY MOUTH
     Route: 048
     Dates: start: 20150511, end: 20150629
  15. VITAMIN B^S [Concomitant]
  16. ALLERGY PILLS FROM WALGREENS [Concomitant]
  17. CRANBERRY. [Concomitant]
     Active Substance: CRANBERRY
  18. BILBERRY [Concomitant]
     Active Substance: BILBERRY
  19. COUMADIN [Concomitant]
     Active Substance: WARFARIN SODIUM
  20. NAMENDA [Concomitant]
     Active Substance: MEMANTINE HYDROCHLORIDE
  21. CALCIUM [Concomitant]
     Active Substance: CALCIUM
  22. OCUVITE [Concomitant]
     Active Substance: VITAMINS

REACTIONS (3)
  - Therapy cessation [None]
  - Pain in extremity [None]
  - Arthralgia [None]

NARRATIVE: CASE EVENT DATE: 20150702
